FAERS Safety Report 11520566 (Version 1)
Quarter: 2015Q3

REPORT INFORMATION
  Report Type: Spontaneous
  Country: US (occurrence: US)
  Receive Date: 20150918
  Receipt Date: 20150918
  Transmission Date: 20151125
  Serious: No
  Sender: FDA-Public Use
  Company Number: US-PFIZER INC-2015282679

PATIENT
  Age: 60 Year
  Sex: Male
  Weight: 88 kg

DRUGS (2)
  1. WARFARIN [Interacting]
     Active Substance: WARFARIN
     Dosage: UNK
  2. ARGATROBAN. [Suspect]
     Active Substance: ARGATROBAN
     Dosage: UNK

REACTIONS (2)
  - Drug interaction [Unknown]
  - International normalised ratio increased [Unknown]
